FAERS Safety Report 9222335 (Version 2)
Quarter: 2013Q2

REPORT INFORMATION
  Report Type: Report from Study
  Country: US (occurrence: US)
  Receive Date: 20130410
  Receipt Date: 20130410
  Transmission Date: 20140414
  Serious: Yes (Other)
  Sender: FDA-Public Use
  Company Number: US-BAYER-2013-033289

PATIENT
  Age: 71 Year
  Sex: Female
  Weight: 60.5 kg

DRUGS (10)
  1. XARELTO [Suspect]
     Indication: ATRIAL FIBRILLATION
     Dosage: 20 MG, QD
     Route: 048
     Dates: start: 201203, end: 20120725
  2. XARELTO [Interacting]
     Indication: TRANSIENT ISCHAEMIC ATTACK
  3. ACETYLSALICYLIC ACID({=100 MG) [Interacting]
     Indication: ANTICOAGULANT THERAPY
     Dosage: 81 MG, QD
     Dates: end: 20120725
  4. CADUET [Concomitant]
     Indication: BLOOD CHOLESTEROL ABNORMAL
  5. CADUET [Concomitant]
     Indication: BLOOD PRESSURE ABNORMAL
  6. CHOLESTYRAMINE [Concomitant]
     Route: 048
  7. PRENATAL VITAMINS [Concomitant]
  8. AMIODARONE [Concomitant]
     Indication: ATRIAL FIBRILLATION
     Route: 048
  9. PREVACID [Concomitant]
     Route: 048
  10. CLINDAMYCIN [Concomitant]
     Dosage: 150 MG, UNK
     Route: 048

REACTIONS (6)
  - Epistaxis [Recovered/Resolved]
  - Fatigue [None]
  - Asthenia [None]
  - Feeling abnormal [None]
  - Anxiety [None]
  - Blood pressure decreased [None]
